FAERS Safety Report 9775021 (Version 1)
Quarter: 2013Q4

REPORT INFORMATION
  Report Type: Spontaneous
  Country: US (occurrence: US)
  Receive Date: 20131220
  Receipt Date: 20131220
  Transmission Date: 20140711
  Serious: No
  Sender: FDA-Public Use
  Company Number: US-GLAXOSMITHKLINE-A1038013A

PATIENT
  Age: 75 Year
  Sex: Male

DRUGS (2)
  1. AVODART [Suspect]
     Indication: PROSTATOMEGALY
     Dosage: .5MG PER DAY
     Route: 048
     Dates: start: 2007
  2. LEVOTHYROXINE [Concomitant]

REACTIONS (2)
  - White blood cells urine positive [Unknown]
  - Red blood cells urine positive [Unknown]
